FAERS Safety Report 24588810 (Version 1)
Quarter: 2024Q4

REPORT INFORMATION
  Report Type: Spontaneous
  Country: US (occurrence: None)
  Receive Date: 20241106
  Receipt Date: 20241106
  Transmission Date: 20250115
  Serious: Yes (Hospitalization)
  Sender: Public
  Company Number: None

PATIENT
  Age: 72 Year
  Sex: Male

DRUGS (2)
  1. APIXABAN [Suspect]
     Active Substance: APIXABAN
     Indication: Deep vein thrombosis
  2. LISINOPRIL [Suspect]
     Active Substance: LISINOPRIL

REACTIONS (10)
  - Hypotension [None]
  - Urinary tract infection [None]
  - Clostridium difficile infection [None]
  - Acute kidney injury [None]
  - Diarrhoea [None]
  - Fall [None]
  - Head injury [None]
  - Cerebral haemorrhage [None]
  - Gait disturbance [None]
  - X-ray of pelvis and hip abnormal [None]

NARRATIVE: CASE EVENT DATE: 20240330
